FAERS Safety Report 12471818 (Version 1)
Quarter: 2016Q2

REPORT INFORMATION
  Report Type: Spontaneous
  Country: US (occurrence: None)
  Receive Date: 20160615
  Receipt Date: 20160615
  Transmission Date: 20160815
  Serious: Yes (Hospitalization)
  Sender: FDA-Public Use
  Company Number: None

PATIENT
  Age: 69 Year
  Sex: Male
  Weight: 82.1 kg

DRUGS (12)
  1. LASIS [Concomitant]
  2. HUMALOG [Concomitant]
     Active Substance: INSULIN LISPRO
  3. BENADRYL [Suspect]
     Active Substance: DIPHENHYDRAMINE HYDROCHLORIDE
     Route: 048
  4. LIDOCAINE. [Concomitant]
     Active Substance: LIDOCAINE
  5. DOPAMINE [Concomitant]
     Active Substance: DOPAMINE\DOPAMINE HYDROCHLORIDE
  6. AMIODARONE [Concomitant]
     Active Substance: AMIODARONE
  7. ASA [Concomitant]
     Active Substance: ASPIRIN
  8. TRICOR [Concomitant]
     Active Substance: FENOFIBRATE
  9. SYNTH [Concomitant]
  10. XANAX [Suspect]
     Active Substance: ALPRAZOLAM
     Indication: AGITATION
     Dosage: 0.25 ONCE IV?0.50
     Route: 042
  11. WELCHOL [Concomitant]
     Active Substance: COLESEVELAM HYDROCHLORIDE
  12. CARDIZEM [Concomitant]
     Active Substance: DILTIAZEM HYDROCHLORIDE

REACTIONS (5)
  - Unresponsive to stimuli [None]
  - Hyperhidrosis [None]
  - Tachypnoea [None]
  - Atrial fibrillation [None]
  - Anxiety [None]

NARRATIVE: CASE EVENT DATE: 20151201
